FAERS Safety Report 7105723-1 (Version None)
Quarter: 2010Q4

REPORT INFORMATION
  Report Type: 
  Country: None (occurrence: None)
  Receive Date: 20101116
  Receipt Date: 20101105
  Transmission Date: 20110411
  Serious: Yes (Other)
  Sender: FDA-Public Use
  Company Number: PHHY2010JP59516

PATIENT
  Sex: Female
  Weight: 54 kg

DRUGS (2)
  1. RASILEZ [Suspect]
     Indication: HYPERTENSION
     Dosage: 150 MG/DAY
     Route: 048
     Dates: start: 20100807, end: 20100821
  2. LIVALO [Concomitant]
     Indication: HYPERLIPIDAEMIA
     Dosage: 1 MG/DAY
     Route: 048
     Dates: start: 20100512

REACTIONS (7)
  - DIZZINESS [None]
  - GAIT DISTURBANCE [None]
  - MUSCLE RIGIDITY [None]
  - PALPITATIONS [None]
  - PARKINSON'S DISEASE [None]
  - THIRST [None]
  - TREMOR [None]
